FAERS Safety Report 8360237-6 (Version None)
Quarter: 2012Q2

REPORT INFORMATION
  Report Type: 
  Country: None (occurrence: None)
  Receive Date: 20120515
  Receipt Date: 20110715
  Transmission Date: 20120825
  Serious: Yes (Other)
  Sender: FDA-Public Use
  Company Number: US-ALEXION-A201100911

PATIENT
  Sex: Male

DRUGS (14)
  1. REGLAN [Concomitant]
     Indication: GASTRIC HAEMORRHAGE
     Dosage: UNK 1-2 TABS QD PRN
     Route: 048
  2. VITAMIN E [Concomitant]
     Dosage: UNK QD
     Route: 048
  3. SOLIRIS [Suspect]
     Dosage: 900 MG Q2W
  4. PROPRANOLOL [Concomitant]
     Indication: PORTAL HYPERTENSION
     Dosage: 10 MG TID
  5. TRAMADOL HYDROCHLORIDE [Concomitant]
     Dosage: UNK
  6. LOPERAMIDE [Concomitant]
     Dosage: UNK
  7. FOLIC ACID [Concomitant]
     Dosage: UNK QD
     Route: 048
  8. CARAFATE [Concomitant]
     Dosage: 1 G TID
     Route: 048
  9. FUROSEMIDE [Concomitant]
     Dosage: UNK
  10. COUMADIN [Concomitant]
     Dosage: 6 MG QD
     Route: 048
  11. IRON [Concomitant]
     Indication: ANAEMIA
     Dosage: UNK Q OTHER D
     Route: 042
     Dates: start: 20110617
  12. SOLIRIS [Suspect]
     Indication: PAROXYSMAL NOCTURNAL HAEMOGLOBINURIA
     Dosage: 1200 MG UNK
     Route: 042
     Dates: start: 20110301
  13. SOLIRIS [Suspect]
     Dosage: 600 MG UNK
     Route: 042
  14. ALLOPURINOL [Concomitant]
     Indication: POOR PERIPHERAL CIRCULATION
     Dosage: 100 MG TID
     Route: 048

REACTIONS (1)
  - HEPATIC LESION [None]
